FAERS Safety Report 8102282-1 (Version None)
Quarter: 2012Q1

REPORT INFORMATION
  Report Type: 
  Country: None (occurrence: None)
  Receive Date: 20120201
  Receipt Date: 20120126
  Transmission Date: 20120608
  Serious: Yes (Other)
  Sender: FDA-Public Use
  Company Number: US-PFIZER INC-2012022164

PATIENT
  Sex: Male
  Weight: 77.098 kg

DRUGS (2)
  1. LEVOTHYROXINE [Concomitant]
     Indication: THYROID DISORDER
     Dosage: UNK
  2. LIPITOR [Suspect]
     Indication: BLOOD CHOLESTEROL INCREASED
     Dosage: 10 MG, 1X/DAY
     Route: 048
     Dates: start: 20050101

REACTIONS (1)
  - DIABETES MELLITUS [None]
